FAERS Safety Report 7477900-1 (Version None)
Quarter: 2011Q2

REPORT INFORMATION
  Report Type: 
  Country: None (occurrence: None)
  Receive Date: 20110513
  Receipt Date: 20071220
  Transmission Date: 20111010
  Serious: Yes (Hospitalization, Other)
  Sender: FDA-Public Use
  Company Number: US-BAYER-200716980NA

PATIENT
  Age: 58 Year
  Sex: Male
  Weight: 72.562 kg

DRUGS (17)
  1. METFORMIN HCL [Concomitant]
  2. PROTAMINE SULFATE [Concomitant]
     Dosage: 300 MG, UNK
     Route: 042
     Dates: start: 20041008
  3. TRASYLOL [Suspect]
     Dosage: LOADING DOSE 400 CC BOLUS FOLLOWED BY A 50 ML/HR CONTINUOUS INFUSION
     Route: 042
  4. INSULIN [INSULIN] [Concomitant]
     Dosage: 20 U, CARDIAC BYPASS
     Dates: start: 20041008
  5. RED BLOOD CELLS [Concomitant]
     Dosage: 2 U, UNK
  6. LABETALOL [Concomitant]
     Dosage: 11 MG, UNK
     Route: 042
     Dates: start: 20041008
  7. TRASYLOL [Suspect]
     Indication: CORONARY ARTERY BYPASS
     Dosage: INITIAL (TEST) DOSE OF 1 ML
     Route: 042
     Dates: start: 20041008, end: 20041008
  8. ACETYLSALICYLIC ACID SRT [Concomitant]
     Dosage: 325 MG, UNK
     Route: 048
  9. METOPROLOL SUCCINATE [Concomitant]
     Dosage: 50 MG, BID
     Route: 048
  10. METOPROLOL SUCCINATE [Concomitant]
     Dosage: 5 MG, UNK
     Route: 042
     Dates: start: 20041008
  11. NITROGLYCERIN [Concomitant]
     Dosage: IV DRIP
     Dates: start: 20041008
  12. FUROSEMIDUM [FUROSEMIDE] [Concomitant]
  13. GLYBURIDE [Concomitant]
     Dosage: 5 MG, BID
     Route: 048
  14. HEPARIN [Concomitant]
     Dosage: 30 U, UNK
     Dates: start: 20041008
  15. SIMVASTATIN [Concomitant]
     Dosage: 40 MG, UNK
     Route: 048
  16. LISINOPRIL [Concomitant]
     Dosage: 20 MG, UNK
     Route: 048
  17. NIACIN [Concomitant]

REACTIONS (9)
  - RENAL FAILURE [None]
  - FEAR [None]
  - ADVERSE EVENT [None]
  - ANXIETY [None]
  - ANHEDONIA [None]
  - DEPRESSION [None]
  - INJURY [None]
  - EMOTIONAL DISTRESS [None]
  - PAIN [None]
